FAERS Safety Report 7629312-5 (Version None)
Quarter: 2011Q3

REPORT INFORMATION
  Report Type: 
  Country: None (occurrence: None)
  Receive Date: 20110722
  Receipt Date: 20110722
  Transmission Date: 20111222
  Serious: Yes (Death)
  Sender: FDA-Public Use
  Company Number: JP-B.I. PHARMACEUTICALS,INC./RIDGEFIELD-2011-BP-18192NB

PATIENT
  Age: 90 Year
  Sex: Female

DRUGS (9)
  1. LASIX [Concomitant]
     Route: 048
  2. GASMOTIN [Concomitant]
     Route: 065
  3. MUCOSOLVAN [Concomitant]
     Route: 065
  4. CARVEDILOL [Concomitant]
     Route: 048
  5. SUNRYTHM [Concomitant]
     Route: 048
  6. PRADAXA [Suspect]
     Dosage: 220 MG
     Route: 048
     Dates: start: 20110716, end: 20110719
  7. ASPIRIN [Concomitant]
     Route: 065
  8. ALDACTONE [Concomitant]
     Route: 048
  9. OMEPRAZOLE [Concomitant]
     Route: 065

REACTIONS (1)
  - DEATH [None]
